FAERS Safety Report 9629334 (Version 1)
Quarter: 2013Q4

REPORT INFORMATION
  Report Type: Spontaneous
  Country: CN (occurrence: CN)
  Receive Date: 20131017
  Receipt Date: 20131017
  Transmission Date: 20140711
  Serious: Yes (Other)
  Sender: FDA-Public Use
  Company Number: CN-PFIZER INC-2013292934

PATIENT
  Age: 3 Year
  Sex: 0
  Weight: 15 kg

DRUGS (2)
  1. ZITHROMAX [Suspect]
     Indication: UPPER RESPIRATORY TRACT INFECTION
     Dosage: 150 MG, 1X/DAY
     Route: 048
  2. ZITHROMAX [Suspect]
     Indication: PYREXIA
     Dosage: 150 MG, 1X/DAY
     Route: 048

REACTIONS (4)
  - Anuria [Unknown]
  - Off label use [Unknown]
  - Drug effect incomplete [Unknown]
  - Pyrexia [Unknown]
